FAERS Safety Report 6089323-0 (Version None)
Quarter: 2009Q1

REPORT INFORMATION
  Report Type: 
  Country: None (occurrence: None)
  Receive Date: 20090224
  Receipt Date: 20090209
  Transmission Date: 20090719
  Serious: Yes (Other)
  Sender: FDA-Public Use
  Company Number: ES-GENENTECH-277441

PATIENT
  Sex: Female

DRUGS (2)
  1. AVASTIN [Suspect]
     Indication: BREAST CANCER
     Dosage: 10 MG/KG, Q2W
     Dates: start: 20081001, end: 20090101
  2. PACLITAXEL [Suspect]
     Indication: BREAST CANCER
     Dosage: UNK
     Dates: start: 20081001, end: 20090101

REACTIONS (1)
  - DERMATITIS [None]
